FAERS Safety Report 12864105 (Version 1)
Quarter: 2016Q4

REPORT INFORMATION
  Report Type: Spontaneous
  Country: SA (occurrence: SA)
  Receive Date: 20161019
  Receipt Date: 20161019
  Transmission Date: 20170207
  Serious: Yes (Other)
  Sender: FDA-Public Use
  Company Number: SA-ROCHE-1843693

PATIENT
  Sex: Female

DRUGS (2)
  1. XOLAIR [Suspect]
     Active Substance: OMALIZUMAB
     Indication: CHRONIC SPONTANEOUS URTICARIA
     Dosage: 300 MG
     Route: 065
  2. XOLAIR [Suspect]
     Active Substance: OMALIZUMAB
     Indication: POST-TRAUMATIC STRESS DISORDER
     Route: 065

REACTIONS (4)
  - Therapy non-responder [Unknown]
  - Angioedema [Unknown]
  - Dyspnoea [Unknown]
  - Product use issue [Unknown]
